FAERS Safety Report 4818358-8 (Version None)
Quarter: 2005Q4

REPORT INFORMATION
  Report Type: 
  Country: None (occurrence: None)
  Receive Date: 20051031
  Receipt Date: 20051017
  Transmission Date: 20060501
  Serious: Yes (Other)
  Sender: FDA-Public Use
  Company Number: 2005144318

PATIENT
  Age: 16 Year
  Sex: Female

DRUGS (6)
  1. GEODON [Suspect]
     Indication: AGITATION
     Dosage: 240 MG (1 IN 1D), ORAL
     Route: 048
     Dates: start: 20050101
  2. LEXAPRO [Concomitant]
  3. DEPO-PROVERA SUSPENSION/INJ [Concomitant]
  4. SEROQUEL [Concomitant]
  5. COGENTIN [Concomitant]
  6. TOPAMAX [Concomitant]

REACTIONS (5)
  - BACK PAIN [None]
  - DIZZINESS [None]
  - DYSPEPSIA [None]
  - NAUSEA [None]
  - RENAL FAILURE [None]
